FAERS Safety Report 5382860-3 (Version None)
Quarter: 2007Q3

REPORT INFORMATION
  Report Type: 
  Country: None (occurrence: None)
  Receive Date: 20070703
  Receipt Date: 20070703
  Transmission Date: 20080115
  Serious: Yes (Other)
  Sender: FDA-Public Use
  Company Number: None

PATIENT
  Age: 21 Year
  Sex: Female
  Weight: 55.7924 kg

DRUGS (1)
  1. CHLOROQUINE PHOSPHATE [Suspect]
     Indication: MALARIA PROPHYLAXIS
     Dosage: 500 MG 1/WEEK PO
     Route: 048
     Dates: start: 20070603, end: 20070610

REACTIONS (9)
  - ABDOMINAL DISCOMFORT [None]
  - ALOPECIA [None]
  - ANXIETY [None]
  - BACK PAIN [None]
  - HEADACHE [None]
  - MENTAL STATUS CHANGES [None]
  - METRORRHAGIA [None]
  - NEUROSIS [None]
  - OBSESSIVE-COMPULSIVE DISORDER [None]
